FAERS Safety Report 13194791 (Version 1)
Quarter: 2017Q1

REPORT INFORMATION
  Report Type: Spontaneous
  Country: IT (occurrence: IT)
  Receive Date: 20170207
  Receipt Date: 20170207
  Transmission Date: 20170428
  Serious: Yes (Other)
  Sender: FDA-Public Use
  Company Number: IT-SA-2017SA018072

PATIENT
  Age: 66 Year
  Sex: Male

DRUGS (3)
  1. OXALIPLATIN. [Suspect]
     Active Substance: OXALIPLATIN
     Indication: ADENOCARCINOMA OF COLON
     Dosage: FORMULATION: INFUSION
     Route: 042
     Dates: start: 20161212, end: 20161212
  2. 5-FU [Concomitant]
     Active Substance: FLUOROURACIL
     Route: 065
  3. CALCIUM LEVOFOLINATE [Concomitant]
     Active Substance: LEVOLEUCOVORIN CALCIUM
     Route: 065

REACTIONS (1)
  - Hyperthermia [Recovered/Resolved]

NARRATIVE: CASE EVENT DATE: 20161212
